FAERS Safety Report 5333595-4 (Version None)
Quarter: 2007Q2

REPORT INFORMATION
  Report Type: 
  Country: None (occurrence: None)
  Receive Date: 20070524
  Receipt Date: 20070515
  Transmission Date: 20071010
  Serious: Yes (Death)
  Sender: FDA-Public Use
  Company Number: US-ROCHE-490431

PATIENT
  Age: 33 Year
  Sex: Male

DRUGS (2)
  1. KLONOPIN [Suspect]
     Indication: ANXIETY
     Route: 065
     Dates: start: 20070209, end: 20070220
  2. CELEXA [Suspect]
     Indication: DEPRESSION
     Route: 048
     Dates: start: 20070209, end: 20070220

REACTIONS (2)
  - COMPLETED SUICIDE [None]
  - GUN SHOT WOUND [None]
